FAERS Safety Report 24210731 (Version 1)
Quarter: 2024Q3

REPORT INFORMATION
  Report Type: Spontaneous
  Country: US (occurrence: None)
  Receive Date: 20240813
  Receipt Date: 20240813
  Transmission Date: 20241017
  Serious: Yes (Other)
  Sender: Public
  Company Number: None

PATIENT
  Age: 65 Year
  Sex: Female
  Weight: 49.9 kg

DRUGS (2)
  1. CEPHALEXIN [Suspect]
     Active Substance: CEPHALEXIN
     Indication: Staphylococcal infection
     Dosage: OTHER QUANTITY : 1 X 4 TIME A DAY ?FREQUENCY : 4 TIMES A DAY?
     Route: 048
     Dates: start: 20230705, end: 20230706
  2. Multivitamin [Concomitant]

REACTIONS (5)
  - Dizziness [None]
  - Confusional state [None]
  - Paranoia [None]
  - Personality disorder [None]
  - Product complaint [None]

NARRATIVE: CASE EVENT DATE: 20230707
